FAERS Safety Report 4888538-4 (Version None)
Quarter: 2005Q4

REPORT INFORMATION
  Report Type: 
  Country: None (occurrence: None)
  Receive Date: 20051215
  Receipt Date: 20050420
  Transmission Date: 20060501
  Serious: Yes (Hospitalization)
  Sender: FDA-Public Use
  Company Number: 2005063192

PATIENT
  Age: 48 Year
  Sex: Female
  Weight: 143.7903 kg

DRUGS (7)
  1. BEXTRA [Suspect]
     Indication: PAIN IN EXTREMITY
  2. INSULIN [Concomitant]
  3. SALBUTAMOL (SALBUTAMOL) [Concomitant]
  4. ENALAPRIL MALEATE [Concomitant]
  5. LABETALOL HCL [Concomitant]
  6. FUROSEMIDE [Concomitant]
  7. QUINIDINE (QUINIDINE) [Concomitant]

REACTIONS (3)
  - DRUG INEFFECTIVE [None]
  - DYSPNOEA [None]
  - HEART RATE IRREGULAR [None]
